FAERS Safety Report 8134629-4 (Version None)
Quarter: 2012Q1

REPORT INFORMATION
  Report Type: 
  Country: None (occurrence: None)
  Receive Date: 20120214
  Receipt Date: 20120131
  Transmission Date: 20120608
  Serious: Yes (Hospitalization)
  Sender: FDA-Public Use
  Company Number: FR-UCBSA-037431

PATIENT
  Age: 53 Year
  Sex: Male

DRUGS (16)
  1. PREDNISONE TAB [Suspect]
     Route: 048
     Dates: start: 20110501
  2. KEPPRA [Suspect]
     Route: 048
  3. RAMIPRIL [Suspect]
     Route: 048
     Dates: start: 20110604, end: 20110614
  4. REPAGLINIDE [Suspect]
     Indication: DIABETES MELLITUS
     Route: 048
     Dates: start: 20110603, end: 20110626
  5. EUPRESSYL [Suspect]
     Route: 048
     Dates: start: 20110529
  6. PREDNISOLONE [Suspect]
     Route: 048
     Dates: start: 20110605, end: 20110626
  7. CALCIUM CARBONATE [Suspect]
     Route: 048
  8. SOLU-MEDROL [Concomitant]
     Route: 042
     Dates: start: 20110626, end: 20110629
  9. AMLODIPINE BESYLATE [Suspect]
     Route: 048
  10. PREDNISOLONE [Suspect]
     Route: 048
     Dates: start: 20110630
  11. SOLU-MEDROL [Concomitant]
     Route: 042
     Dates: start: 20110601, end: 20110604
  12. KAYEXALATE [Suspect]
     Route: 048
     Dates: start: 20110603, end: 20110626
  13. CITALOPRAM [Suspect]
     Dosage: 20
     Route: 048
  14. RENAGEL [Suspect]
     Route: 048
  15. ATORVASTATIN [Suspect]
     Route: 048
     Dates: start: 20110530, end: 20110624
  16. ARANESP [Suspect]
     Dosage: 50MUG
     Route: 058

REACTIONS (8)
  - THROMBOCYTOPENIA [None]
  - RENAL IMPAIRMENT [None]
  - NEPHROPATHY [None]
  - HYDROCEPHALUS [None]
  - SEPSIS [None]
  - ANAEMIA [None]
  - DIZZINESS [None]
  - LEUKOCYTOCLASTIC VASCULITIS [None]
